FAERS Safety Report 9815725 (Version 1)
Quarter: 2014Q1

REPORT INFORMATION
  Report Type: Spontaneous
  Country: US (occurrence: US)
  Receive Date: 20140114
  Receipt Date: 20140114
  Transmission Date: 20141002
  Serious: Yes (Other)
  Sender: FDA-Public Use
  Company Number: PHHY2014US001565

PATIENT
  Age: 41 Year
  Sex: Male

DRUGS (4)
  1. MYCOPHENOLIC ACID [Suspect]
     Indication: IMMUNOSUPPRESSION
  2. PREDNISONE [Suspect]
     Route: 048
  3. METHYLPREDNISOLONE [Concomitant]
     Route: 042
  4. CYCLOPHOSPHAMIDE [Concomitant]
     Route: 048

REACTIONS (2)
  - Perirectal abscess [Recovered/Resolved]
  - Abdominal pain [Recovered/Resolved]
